FAERS Safety Report 18221894 (Version 1)
Quarter: 2020Q3

REPORT INFORMATION
  Report Type: Spontaneous
  Country: US (occurrence: US)
  Receive Date: 20200901
  Receipt Date: 20200901
  Transmission Date: 20201103
  Serious: No
  Sender: FDA-Public Use
  Company Number: None

PATIENT
  Age: 71 Year
  Sex: Male
  Weight: 105.3 kg

DRUGS (6)
  1. VITAMIN D3 [Concomitant]
     Active Substance: CHOLECALCIFEROL
  2. METOPROLOL TARTRATE 50 MG. [Suspect]
     Active Substance: METOPROLOL TARTRATE
     Indication: HYPERTENSION
     Dosage: ?          QUANTITY:180 TABLET(S);?
     Route: 048
     Dates: start: 20200901, end: 20200901
  3. CLONAZEPAM. [Concomitant]
     Active Substance: CLONAZEPAM
  4. COLACE [Concomitant]
     Active Substance: DOCUSATE SODIUM
  5. LIPOFLAVONOID [Concomitant]
     Active Substance: UNSPECIFIED INGREDIENT
  6. CLONIDINE. [Concomitant]
     Active Substance: CLONIDINE

REACTIONS (3)
  - Product odour abnormal [None]
  - Eructation [None]
  - Product substitution issue [None]

NARRATIVE: CASE EVENT DATE: 20200901
